FAERS Safety Report 23548686 (Version 2)
Quarter: 2024Q1

REPORT INFORMATION
  Report Type: Spontaneous
  Country: PL (occurrence: PL)
  Receive Date: 20240221
  Receipt Date: 20240308
  Transmission Date: 20240410
  Serious: Yes (Other)
  Sender: FDA-Public Use
  Company Number: PL-002147023-NVSC2023PL231314

PATIENT
  Age: 22 Year
  Sex: Female

DRUGS (2)
  1. METHOTREXATE [Suspect]
     Active Substance: METHOTREXATE
     Indication: Chronic graft versus host disease
     Dosage: 15 MG/WEEK
     Route: 065
  2. RUXOLITINIB [Suspect]
     Active Substance: RUXOLITINIB
     Indication: Chronic graft versus host disease
     Dosage: 20 MG (2X10 MG)
     Route: 065
     Dates: start: 201812

REACTIONS (14)
  - Cachexia [Unknown]
  - Poikiloderma [Unknown]
  - Systemic scleroderma [Unknown]
  - Device related thrombosis [Unknown]
  - Ischaemic stroke [Unknown]
  - Tachycardia [Unknown]
  - Pulmonary fibrosis [Recovered/Resolved]
  - Dyspnoea [Unknown]
  - Aphasia [Unknown]
  - Hemiparesis [Unknown]
  - Dyslipidaemia [Unknown]
  - Iron deficiency anaemia [Unknown]
  - Disease progression [Unknown]
  - Depression [Unknown]

NARRATIVE: CASE EVENT DATE: 20190101
